FAERS Safety Report 8458490-3 (Version None)
Quarter: 2012Q2

REPORT INFORMATION
  Report Type: 
  Country: None (occurrence: None)
  Receive Date: 20120615
  Receipt Date: 20120607
  Transmission Date: 20120825
  Serious: Yes (Other)
  Sender: FDA-Public Use
  Company Number: 2012-001709

PATIENT
  Age: 75 Year
  Sex: Female
  Weight: 80.7 kg

DRUGS (8)
  1. ACTONEL [Suspect]
     Indication: OSTEOPOROSIS POSTMENOPAUSAL
     Dosage: 150 MG ONCE MONTHLY, ORAL
     Route: 048
     Dates: start: 20111001, end: 20120401
  2. SPIRIVA [Concomitant]
  3. LEVOTHYROXINE SODIUM [Concomitant]
  4. ESCITALOPRAM [Concomitant]
  5. ALENDRONATE SODIUM [Suspect]
  6. LIPITOR [Concomitant]
  7. ACTONEL [Suspect]
     Indication: OSTEOPOROSIS POSTMENOPAUSAL
     Dosage: 35 MG, WEEKLY, ORAL
     Route: 048
     Dates: start: 20040101, end: 20120101
  8. SYMBICORT [Concomitant]

REACTIONS (5)
  - GROIN PAIN [None]
  - STRESS FRACTURE [None]
  - ATYPICAL FEMUR FRACTURE [None]
  - PAIN IN EXTREMITY [None]
  - BURSITIS [None]
